FAERS Safety Report 18236976 (Version 1)
Quarter: 2020Q3

REPORT INFORMATION
  Report Type: Spontaneous
  Country: US (occurrence: US)
  Receive Date: 20200907
  Receipt Date: 20200907
  Transmission Date: 20201103
  Serious: Yes (Other)
  Sender: FDA-Public Use
  Company Number: US-ROCHE-2670878

PATIENT
  Age: 58 Year
  Sex: Male

DRUGS (3)
  1. RITUXAN [Suspect]
     Active Substance: RITUXIMAB
     Indication: NEUROMYELITIS OPTICA SPECTRUM DISORDER
     Dosage: DAY 1 AND DAY 15 EVERY 6 MONTH (TOTAL DOSE 2000 MG EVERY 6 MONTHS)
     Route: 065
  2. IMURAN [Concomitant]
     Active Substance: AZATHIOPRINE
  3. PREDNISONE. [Concomitant]
     Active Substance: PREDNISONE

REACTIONS (9)
  - Off label use [Unknown]
  - Intentional product use issue [Unknown]
  - Gait disturbance [Unknown]
  - Muscle spasticity [Unknown]
  - Optic neuritis [Unknown]
  - Clonus [Unknown]
  - B-lymphocyte count decreased [Unknown]
  - Myelopathy [Unknown]
  - Visual impairment [Unknown]
